FAERS Safety Report 19520413 (Version 1)
Quarter: 2021Q3

REPORT INFORMATION
  Report Type: Spontaneous
  Country: IN (occurrence: IN)
  Receive Date: 20210712
  Receipt Date: 20210712
  Transmission Date: 20211014
  Serious: Yes (Hospitalization)
  Sender: FDA-Public Use
  Company Number: IN-MYLANLABS-2021M1040756

PATIENT
  Sex: Male

DRUGS (3)
  1. GLUCOSE [Suspect]
     Active Substance: DEXTROSE
     Indication: HYPERINSULINISM
     Dosage: INCREASING GLUCOSE INFUSION RATE; GLUCOSE INFUSION RATE WAS...
     Route: 042
  2. HYDROCORTISONE. [Suspect]
     Active Substance: HYDROCORTISONE
     Indication: HYPERINSULINISM
     Dosage: UNK
     Route: 065
  3. OCTREOTIDE. [Suspect]
     Active Substance: OCTREOTIDE
     Indication: HYPERINSULINISM
     Dosage: UNK
     Route: 065

REACTIONS (1)
  - Drug ineffective [Unknown]
